FAERS Safety Report 15984783 (Version 1)
Quarter: 2019Q1

REPORT INFORMATION
  Report Type: Spontaneous
  Country: AR (occurrence: AR)
  Receive Date: 20190220
  Receipt Date: 20190220
  Transmission Date: 20190418
  Serious: Yes (Death, Other)
  Sender: FDA-Public Use
  Company Number: AR-BAYER-2019-035799

PATIENT
  Age: 15 Year
  Sex: Female

DRUGS (1)
  1. ASPIRIN. [Suspect]
     Active Substance: ASPIRIN
     Indication: ABORTION
     Dosage: UNK UNK, ONCE
     Dates: start: 20190214, end: 20190214

REACTIONS (6)
  - Cardio-respiratory arrest [Fatal]
  - Feeling abnormal [None]
  - Gastritis [None]
  - Gastrointestinal injury [None]
  - Intentional product misuse [None]
  - Intentional overdose [None]

NARRATIVE: CASE EVENT DATE: 20190214
